FAERS Safety Report 4413432-2 (Version None)
Quarter: 2004Q3

REPORT INFORMATION
  Report Type: 
  Country: None (occurrence: None)
  Receive Date: 20040728
  Receipt Date: 20040720
  Transmission Date: 20050211
  Serious: Yes (Hospitalization)
  Sender: FDA-Public Use
  Company Number: STA-AE-04-MTX-318

PATIENT
  Age: 65 Year
  Sex: Female

DRUGS (13)
  1. METHOTREXATE [Suspect]
     Indication: RHEUMATOID ARTHRITIS
     Dosage: 15 MG 1X PER 1 WK, ORAL
     Route: 048
     Dates: start: 19940101, end: 20040101
  2. METHOTREXATE [Suspect]
     Indication: RHEUMATOID ARTHRITIS
     Dosage: 17.5 MG 1X PER 1 WK, ORAL
     Route: 048
     Dates: start: 20040101
  3. ENBREL [Suspect]
     Indication: RHEUMATOID ARTHRITIS
     Dosage: 25 MG 2X PER 1 WK, SC
     Route: 058
     Dates: start: 20021001, end: 20030101
  4. ARAVA [Concomitant]
  5. ALBUTEROL [Concomitant]
  6. PREMARIN (CONJGUATED ESTROGENS) [Concomitant]
  7. ASPIRIN [Concomitant]
  8. LASIX [Concomitant]
  9. PREDNISONE [Concomitant]
  10. KLOR-CON [Concomitant]
  11. METOPROLOL (METOPROLOL) [Concomitant]
  12. TRAMADOL HCL [Concomitant]
  13. INSULIN [Concomitant]

REACTIONS (2)
  - CARDIAC FAILURE CONGESTIVE [None]
  - PLEURAL EFFUSION [None]
